FAERS Safety Report 8490980-X (Version None)
Quarter: 2012Q2

REPORT INFORMATION
  Report Type: 
  Country: None (occurrence: None)
  Receive Date: 20120625
  Receipt Date: 20120613
  Transmission Date: 20120825
  Serious: Yes (Hospitalization)
  Sender: FDA-Public Use
  Company Number: 2012032624

PATIENT
  Sex: Male
  Weight: 43.1 kg

DRUGS (2)
  1. BERINERT [Suspect]
     Indication: HEREDITARY ANGIOEDEMA
     Dosage: (STRENGTH = 500 UNITS; DOSE = 2000UNITS AS NEEDED INTRAVENOUS (NOT OTHERWISE SPECIFIED))
     Route: 042
     Dates: start: 20120411
  2. DILAUDID [Suspect]

REACTIONS (2)
  - ABDOMINAL DISTENSION [None]
  - DRUG HYPERSENSITIVITY [None]
